FAERS Safety Report 17162823 (Version 3)
Quarter: 2020Q2

REPORT INFORMATION
  Report Type: Spontaneous
  Country: US (occurrence: US)
  Receive Date: 20191217
  Receipt Date: 20200514
  Transmission Date: 20200713
  Serious: Yes (Other)
  Sender: FDA-Public Use
  Company Number: US-GILEAD-2019-0442868

PATIENT
  Age: 41 Year
  Sex: Male
  Weight: 78.4 kg

DRUGS (20)
  1. FENTANYL. [Concomitant]
     Active Substance: FENTANYL
  2. PRENATAL VITAMINS [MINERALS NOS;VITAMINS NOS] [Concomitant]
     Active Substance: MINERALS\VITAMINS
  3. AMITRIPTYLINE HCL [Concomitant]
     Active Substance: AMITRIPTYLINE
  4. TRUVADA [Suspect]
     Active Substance: EMTRICITABINE\TENOFOVIR DISOPROXIL FUMARATE
     Indication: PRODUCT USED FOR UNKNOWN INDICATION
     Dosage: 1 DOSAGE FORM, QD
     Route: 048
     Dates: start: 2007, end: 201210
  5. COLACE [Concomitant]
     Active Substance: DOCUSATE SODIUM
  6. VERSED [Concomitant]
     Active Substance: MIDAZOLAM HYDROCHLORIDE
  7. EPZICOM [Concomitant]
     Active Substance: ABACAVIR SULFATE\LAMIVUDINE
  8. PROPRANOLOL [Concomitant]
     Active Substance: PROPRANOLOL HYDROCHLORIDE
  9. TRIAMCINOLONE [Concomitant]
     Active Substance: TRIAMCINOLONE
  10. TRUVADA [Suspect]
     Active Substance: EMTRICITABINE\TENOFOVIR DISOPROXIL FUMARATE
     Dosage: 1 DOSAGE FORM, 3 TIMES/WEEK
     Route: 048
     Dates: start: 201107
  11. DESCOVY [Concomitant]
     Active Substance: EMTRICITABINE\TENOFOVIR ALAFENAMIDE FUMARATE
     Route: 065
  12. CIPROFLOXACIN. [Concomitant]
     Active Substance: CIPROFLOXACIN
  13. HAVRIX [Concomitant]
     Active Substance: HEPATITIS A VIRUS STRAIN HM175 ANTIGEN (FORMALDEHYDE INACTIVATED)
  14. ERGOCALCIFEROL. [Concomitant]
     Active Substance: ERGOCALCIFEROL
  15. MULTIVITAMINS [VITAMINS NOS] [Concomitant]
     Active Substance: VITAMINS
  16. REYATAZ [Concomitant]
     Active Substance: ATAZANAVIR SULFATE
  17. LIDOCAINE. [Concomitant]
     Active Substance: LIDOCAINE
  18. NORVIR [Concomitant]
     Active Substance: RITONAVIR
  19. ENGERIX-B [Concomitant]
     Active Substance: HEPATITIS B VIRUS SUBTYPE ADW2 HBSAG SURFACE PROTEIN ANTIGEN
  20. ACYCLOVIR [ACICLOVIR] [Concomitant]
     Active Substance: ACYCLOVIR

REACTIONS (7)
  - Chronic kidney disease [Recovering/Resolving]
  - Emotional distress [Unknown]
  - Economic problem [Unknown]
  - Anhedonia [Unknown]
  - Renal failure [Unknown]
  - Anxiety [Unknown]
  - Pain [Unknown]

NARRATIVE: CASE EVENT DATE: 201103
